FAERS Safety Report 24877593 (Version 3)
Quarter: 2025Q2

REPORT INFORMATION
  Report Type: Spontaneous
  Country: US (occurrence: US)
  Receive Date: 20250123
  Receipt Date: 20250428
  Transmission Date: 20250716
  Serious: Yes (Hospitalization)
  Sender: SANOFI AVENTIS
  Company Number: US-SA-2025SA020578

PATIENT
  Age: 37 Year
  Sex: Female
  Weight: 107.94 kg

DRUGS (42)
  1. REZUROCK [Suspect]
     Active Substance: BELUMOSUDIL
     Indication: Chronic graft versus host disease
     Dosage: 200 MG, QD
     Route: 048
     Dates: start: 202306
  2. JAKAFI [Suspect]
     Active Substance: RUXOLITINIB
     Indication: Chronic graft versus host disease
     Dosage: 5 MG, QD
     Route: 048
  3. JAKAFI [Suspect]
     Active Substance: RUXOLITINIB
     Dosage: 5 MG, QD
     Route: 048
  4. FAMOTIDINE [Concomitant]
     Active Substance: FAMOTIDINE
  5. NORA BE [Concomitant]
     Active Substance: NORETHINDRONE
  6. LANTUS [Concomitant]
     Active Substance: INSULIN GLARGINE
  7. LANTUS [Concomitant]
     Active Substance: INSULIN GLARGINE
  8. IBUPROFEN [Concomitant]
     Active Substance: IBUPROFEN
  9. ASPIRIN [Concomitant]
     Active Substance: ASPIRIN
  10. MUPIROCIN [Concomitant]
     Active Substance: MUPIROCIN
  11. VITAMIN D3 [Concomitant]
     Active Substance: CHOLECALCIFEROL
  12. VITAMIN D3 [Concomitant]
     Active Substance: CHOLECALCIFEROL
  13. XARELTO [Concomitant]
     Active Substance: RIVAROXABAN
  14. ZYRTEC [Concomitant]
     Active Substance: CETIRIZINE HYDROCHLORIDE
  15. MAGNESIUM OXIDE [Concomitant]
     Active Substance: MAGNESIUM OXIDE
  16. DEXAMETHASONE [Concomitant]
     Active Substance: DEXAMETHASONE
  17. FUROSEMIDE [Concomitant]
     Active Substance: FUROSEMIDE
  18. CALCIUM\VITAMIN D [Concomitant]
     Active Substance: CALCIUM\VITAMIN D
  19. BACTRIM DS [Concomitant]
     Active Substance: SULFAMETHOXAZOLE\TRIMETHOPRIM
  20. PENTOXIFYLLINE [Concomitant]
     Active Substance: PENTOXIFYLLINE
  21. POTASSIUM CHLORIDE [Concomitant]
     Active Substance: POTASSIUM CHLORIDE
  22. ACYCLOVIR [Concomitant]
     Active Substance: ACYCLOVIR
  23. ACYCLOVIR [Concomitant]
     Active Substance: ACYCLOVIR
  24. ICLUSIG [Concomitant]
     Active Substance: PONATINIB HYDROCHLORIDE
  25. PREDNISONE [Concomitant]
     Active Substance: PREDNISONE
  26. HUMULIN R [Concomitant]
     Active Substance: INSULIN HUMAN
  27. ATORVASTATIN CALCIUM [Concomitant]
     Active Substance: ATORVASTATIN CALCIUM
  28. NYSTATIN [Concomitant]
     Active Substance: NYSTATIN
  29. CIPRO [Concomitant]
     Active Substance: CIPROFLOXACIN HYDROCHLORIDE
  30. TACROLIMUS [Concomitant]
     Active Substance: TACROLIMUS
  31. MOUNJARO [Concomitant]
     Active Substance: TIRZEPATIDE
  32. DULOXETINE [Concomitant]
     Active Substance: DULOXETINE
  33. BUDESONIDE [Concomitant]
     Active Substance: BUDESONIDE
  34. PROTONIX [Concomitant]
     Active Substance: PANTOPRAZOLE SODIUM
  35. HUMULIN NOS [Concomitant]
     Active Substance: INSULIN HUMAN
  36. JAKAFI [Concomitant]
     Active Substance: RUXOLITINIB
  37. ZYRTEC [Concomitant]
     Active Substance: CETIRIZINE HYDROCHLORIDE
  38. DASATINIB [Concomitant]
     Active Substance: DASATINIB
  39. METOPROLOL [Concomitant]
     Active Substance: METOPROLOL
  40. BACTRIM [Concomitant]
     Active Substance: SULFAMETHOXAZOLE\TRIMETHOPRIM
  41. CALCIUM CITRATE\VITAMIN D [Concomitant]
     Active Substance: CALCIUM CITRATE\VITAMIN D
  42. ATORVASTATIN [Concomitant]
     Active Substance: ATORVASTATIN

REACTIONS (7)
  - Lumbar puncture [Unknown]
  - Abdominal pain [Recovering/Resolving]
  - Headache [Recovering/Resolving]
  - Diarrhoea [Recovering/Resolving]
  - Nausea [Recovering/Resolving]
  - Vomiting [Recovering/Resolving]
  - Tooth infection [Recovering/Resolving]

NARRATIVE: CASE EVENT DATE: 20250101
